FAERS Safety Report 4808549-4 (Version None)
Quarter: 2005Q4

REPORT INFORMATION
  Report Type: 
  Country: None (occurrence: None)
  Receive Date: 20051021
  Receipt Date: 20040511
  Transmission Date: 20060501
  Serious: No
  Sender: FDA-Public Use
  Company Number: FR_040504108

PATIENT
  Age: 15 Year
  Sex: Female

DRUGS (2)
  1. ZYPREXA [Suspect]
     Dosage: 10 MG/1 DAY
     Dates: start: 20040503
  2. CLONAZEPAM [Concomitant]

REACTIONS (1)
  - KAOLIN CEPHALIN CLOTTING TIME PROLONGED [None]
